FAERS Safety Report 7816816-5 (Version None)
Quarter: 2011Q4

REPORT INFORMATION
  Report Type: 
  Country: None (occurrence: None)
  Receive Date: 20111013
  Receipt Date: 20111006
  Transmission Date: 20120403
  Serious: Yes (Other)
  Sender: FDA-Public Use
  Company Number: DKLU1073729

PATIENT
  Age: 21 Year
  Sex: Female

DRUGS (7)
  1. DOXORUBICIN HCL [Suspect]
     Indication: NEPHROBLASTOMA
  2. THIOTEPA [Suspect]
     Indication: NEPHROBLASTOMA
  3. COSMEGEN [Suspect]
     Indication: NEPHROBLASTOMA
  4. VINCRISTINE [Suspect]
     Indication: NEPHROBLASTOMA
  5. ETOPOSIDE [Suspect]
     Indication: NEPHROBLASTOMA
  6. CYCLOPHOSPHAMIDE [Suspect]
     Indication: NEPHROBLASTOMA
  7. CARBOPLATIN [Suspect]
     Indication: NEPHROBLASTOMA

REACTIONS (4)
  - NEPHROBLASTOMA [None]
  - BONE MARROW TRANSPLANT [None]
  - BREAST CANCER IN SITU [None]
  - RECURRENT CANCER [None]
